FAERS Safety Report 11165181 (Version 1)
Quarter: 2015Q2

REPORT INFORMATION
  Report Type: Spontaneous
  Country: US (occurrence: None)
  Receive Date: 20150603
  Receipt Date: 20150603
  Transmission Date: 20150821
  Serious: Yes (Hospitalization, Disabling)
  Sender: FDA-Public Use
  Company Number: None

PATIENT
  Age: 48 Year
  Sex: Male
  Weight: 113.4 kg

DRUGS (13)
  1. APPLE CIDER VINEGAR [Concomitant]
     Active Substance: APPLE CIDER VINEGAR
  2. METROPROLOL [Concomitant]
     Active Substance: METOPROLOL
  3. IONIC MAGNESIUM [Concomitant]
  4. HYDROCHLOROTHYAZIDE [Concomitant]
  5. VITAMIN D [Concomitant]
     Active Substance: CHOLECALCIFEROL
  6. AMLODIPINE [Concomitant]
     Active Substance: AMLODIPINE BESYLATE
  7. ASPIRIN. [Concomitant]
     Active Substance: ASPIRIN
  8. CPAP MACHINE [Concomitant]
  9. SELENIUM [Concomitant]
     Active Substance: SELENIUM
  10. IODINE [Concomitant]
     Active Substance: IODINE
  11. TURMERIC [Concomitant]
     Active Substance: TURMERIC
  12. LEVAQUIN [Suspect]
     Active Substance: LEVOFLOXACIN
     Indication: LUNG INFECTION
     Dosage: 1 PILL
     Route: 048
  13. FULVIC ACID [Concomitant]

REACTIONS (3)
  - Malaise [None]
  - Renal impairment [None]
  - Cognitive disorder [None]

NARRATIVE: CASE EVENT DATE: 20110524
